FAERS Safety Report 9765986 (Version 1)
Quarter: 2013Q4

REPORT INFORMATION
  Report Type: Spontaneous
  Country: US (occurrence: US)
  Receive Date: 20131217
  Receipt Date: 20131217
  Transmission Date: 20140711
  Serious: No
  Sender: FDA-Public Use
  Company Number: US-BIOGENIDEC-2013BI116073

PATIENT
  Age: 57 Year
  Sex: Female

DRUGS (11)
  1. TECFIDERA [Suspect]
     Indication: MULTIPLE SCLEROSIS
     Route: 048
     Dates: start: 20131120
  2. GABAPENTIN [Concomitant]
  3. GABAPENTIN [Concomitant]
  4. PRAVASTATIN [Concomitant]
  5. FLUDROCORTISONE [Concomitant]
  6. BACLOFEN [Concomitant]
  7. LEXAPRO [Concomitant]
  8. CALCIUM [Concomitant]
  9. FISH OIL [Concomitant]
  10. ZANAFLEX [Concomitant]
  11. ZANAFLEX [Concomitant]

REACTIONS (2)
  - Headache [Unknown]
  - Flushing [Unknown]
